FAERS Safety Report 7225881-8 (Version None)
Quarter: 2011Q1

REPORT INFORMATION
  Report Type: 
  Country: None (occurrence: None)
  Receive Date: 20110113
  Receipt Date: 20110106
  Transmission Date: 20110831
  Serious: Yes (Hospitalization)
  Sender: FDA-Public Use
  Company Number: GB-GENENTECH-308984

PATIENT
  Sex: Male
  Weight: 102 kg

DRUGS (23)
  1. PREDNISOLONE [Suspect]
     Indication: B-CELL LYMPHOMA
     Dosage: UNK MG, QAM
     Route: 048
     Dates: start: 20100813
  2. VINCRISTINE [Suspect]
     Dosage: UNK
     Route: 042
     Dates: start: 20101014, end: 20101014
  3. CYCLOPHOSPHAMIDE [Suspect]
     Indication: B-CELL LYMPHOMA
     Dosage: UNK
     Route: 042
     Dates: start: 20100813
  4. ALLOPURINOL [Concomitant]
     Indication: PRODUCT USED FOR UNKNOWN INDICATION
     Dosage: 300 MG, QAM
     Route: 048
     Dates: start: 20101014
  5. ONDANSETRON [Concomitant]
     Indication: PRODUCT USED FOR UNKNOWN INDICATION
     Dosage: UNK
     Route: 048
     Dates: start: 20101014, end: 20101014
  6. PARACETAMOL [Concomitant]
     Indication: PRODUCT USED FOR UNKNOWN INDICATION
     Dosage: UNK
     Route: 048
     Dates: start: 20100813
  7. PREDNISOLONE [Suspect]
     Dosage: UNK
     Route: 048
     Dates: start: 20101104
  8. ONDANSETRON [Concomitant]
     Dosage: UNK
     Dates: start: 20101104
  9. DOMPERIDONE [Concomitant]
     Dosage: UNK
     Route: 048
     Dates: start: 20101104
  10. CHLORPHENAMINE [Concomitant]
     Indication: PRODUCT USED FOR UNKNOWN INDICATION
  11. RITUXIMAB [Suspect]
     Indication: B-CELL LYMPHOMA
     Dosage: UNK
     Route: 042
     Dates: start: 20100813
  12. RITUXIMAB [Suspect]
     Dosage: 800 MG, SINGLE
     Route: 042
     Dates: start: 20101014, end: 20101014
  13. CYCLOPHOSPHAMIDE [Suspect]
     Dosage: UNK
     Route: 042
     Dates: start: 20101104
  14. PREDNISOLONE [Suspect]
     Dosage: 80 MG, QD
     Route: 048
     Dates: start: 20101014, end: 20101018
  15. VINCRISTINE [Suspect]
     Indication: B-CELL LYMPHOMA
     Dosage: UNK
     Route: 042
     Dates: start: 20100813
  16. ASPIRIN [Concomitant]
     Indication: HYPERTENSION
     Dosage: 75 MG, QAM
     Route: 048
  17. CYCLOPHOSPHAMIDE [Suspect]
     Dosage: UNK MG, SINGLE
     Route: 042
     Dates: start: 20101014, end: 20101014
  18. BENDROFLUMETHIAZIDE [Concomitant]
     Indication: HYPERTENSION
     Dosage: 2.5 MG, QAM
     Route: 048
  19. LISINOPRIL [Concomitant]
     Indication: HYPERTENSION
     Dosage: 5 MG, QAM
     Route: 048
  20. COTRIM [Concomitant]
     Indication: PRODUCT USED FOR UNKNOWN INDICATION
  21. RITUXIMAB [Suspect]
     Dosage: UNK
     Route: 042
     Dates: start: 20101104
  22. VINCRISTINE [Suspect]
     Dosage: UNK
     Route: 042
     Dates: start: 20101104
  23. DOMPERIDONE [Concomitant]
     Indication: PRODUCT USED FOR UNKNOWN INDICATION
     Dosage: UNK
     Route: 048
     Dates: start: 20101014

REACTIONS (2)
  - HYPERGLYCAEMIA [None]
  - PNEUMOCYSTIS JIROVECI PNEUMONIA [None]
